FAERS Safety Report 6305826-5 (Version None)
Quarter: 2009Q3

REPORT INFORMATION
  Report Type: 
  Country: None (occurrence: None)
  Receive Date: 20090812
  Receipt Date: 20090730
  Transmission Date: 20100115
  Serious: Yes (Hospitalization)
  Sender: FDA-Public Use
  Company Number: US-JNJFOC-20090709985

PATIENT
  Sex: Female
  Weight: 61.24 kg

DRUGS (18)
  1. REMICADE [Suspect]
     Indication: FIBROMYALGIA
     Route: 042
  2. REMICADE [Suspect]
     Indication: SYSTEMIC LUPUS ERYTHEMATOSUS
     Route: 042
  3. REMICADE [Suspect]
     Indication: RHEUMATOID ARTHRITIS
     Dosage: 7.5 MG/KG IN 250 NSS OVER 2 HOURS FOR A TOTAL OF 45 DOSES
     Route: 042
  4. SPORANOX [Suspect]
     Indication: HISTOPLASMOSIS
     Route: 048
  5. LIDODERM [Concomitant]
     Dosage: 1-2 PATCH DAILY, PRN
     Route: 061
  6. AZATHIOPRINE [Concomitant]
     Route: 048
  7. PREVACID [Concomitant]
     Dosage: DELAYED RELEASE
     Route: 048
  8. COMBIVENT [Concomitant]
     Dosage: 2 PUFFS 4 TIMES PER DAY
     Route: 055
  9. CYCLOBENZAPRINE HCL [Concomitant]
     Dosage: AS NEEDED
     Route: 048
  10. ATENOLOL [Concomitant]
     Route: 048
  11. ACETAMINOPHEN AND HYDROCODONE BITARTRATE [Concomitant]
     Dosage: 10-500 MG, 1-2 TABLETS EVERY 6 HOURS PRN  FOR PAIN
     Route: 048
  12. PREMARIN [Concomitant]
     Route: 048
  13. TRIAZOLAM [Concomitant]
     Dosage: BEDTIME
     Route: 048
  14. AMITRIPTYLINE HCL [Concomitant]
     Dosage: BEDTIME
     Route: 048
  15. MORPHINE SULFATE [Concomitant]
     Dosage: EXTENDED RELEASE 12 HOUR
     Route: 048
  16. SOLU-CORTEF [Concomitant]
  17. LISINOPRIL [Concomitant]
     Route: 048
  18. SERTRALINE HCL [Concomitant]
     Route: 048

REACTIONS (8)
  - BLINDNESS UNILATERAL [None]
  - BLOOD CREATININE INCREASED [None]
  - CARDIAC MURMUR [None]
  - HISTOPLASMOSIS DISSEMINATED [None]
  - HYPERTENSION [None]
  - NEURALGIA [None]
  - PALPITATIONS [None]
  - SYNCOPE [None]
